FAERS Safety Report 7344793-2 (Version None)
Quarter: 2011Q1

REPORT INFORMATION
  Report Type: 
  Country: None (occurrence: None)
  Receive Date: 20110228
  Receipt Date: 20110216
  Transmission Date: 20110831
  Serious: Yes (Hospitalization)
  Sender: FDA-Public Use
  Company Number: 1000018298

PATIENT
  Age: 94 Year
  Sex: Male

DRUGS (5)
  1. CITALOPRAM (CITALOPRAM HYDROBROMIDE) (TABLETS) [Suspect]
     Dosage: 20 MG (20 MG,L 1 I N  D),ORAL
     Route: 048
  2. CORDARONE [Suspect]
     Indication: ATRIAL FIBRILLATION
     Dosage: 200 MG (200 MG, 1 IN 1 D), ORAL
     Route: 048
     Dates: end: 20100918
  3. ALLOPURINOL [Suspect]
     Dosage: 200 MG (200 MG, 1 IN 1 D), ORAL
     Route: 048
  4. ZOPICLONE (ZOPICLONE) [Suspect]
     Dosage: 1 DOSAGE FORM (1 DOSAGE FORMS, 1 IN 1 D),ORA
     Route: 048
  5. LYSANXIA (PRAZEPAM) (TABLETS) [Suspect]
     Dosage: 20 MG (10 MG, 2 I N D), ORAL
     Route: 048

REACTIONS (21)
  - OXYGEN SATURATION DECREASED [None]
  - CYANOSIS [None]
  - RALES [None]
  - EOSINOPHIL PERCENTAGE INCREASED [None]
  - PULMONARY HAEMOSIDEROSIS [None]
  - PERIPHERAL COLDNESS [None]
  - HAEMOGLOBIN DECREASED [None]
  - WHITE BLOOD CELL COUNT INCREASED [None]
  - LYMPHOCYTE PERCENTAGE INCREASED [None]
  - LOWER RESPIRATORY TRACT INFLAMMATION [None]
  - HEART RATE INCREASED [None]
  - PO2 DECREASED [None]
  - LUNG DISORDER [None]
  - ACQUIRED DIAPHRAGMATIC EVENTRATION [None]
  - PLEURAL EFFUSION [None]
  - BREATH SOUNDS ABNORMAL [None]
  - C-REACTIVE PROTEIN INCREASED [None]
  - LUNG INFILTRATION [None]
  - LYMPHADENOPATHY MEDIASTINAL [None]
  - RED BLOOD CELL SEDIMENTATION RATE INCREASED [None]
  - PCO2 DECREASED [None]
